FAERS Safety Report 19571019 (Version 3)
Quarter: 2021Q3

REPORT INFORMATION
  Report Type: Report from Study
  Country: US (occurrence: US)
  Receive Date: 20210716
  Receipt Date: 20210920
  Transmission Date: 20211014
  Serious: Yes (Hospitalization, Other)
  Sender: FDA-Public Use
  Company Number: US-OTSUKA-2021_024496

PATIENT
  Age: 83 Year
  Sex: Male

DRUGS (5)
  1. CEDAZURIDINE AND DECITABINE [Suspect]
     Active Substance: CEDAZURIDINE\DECITABINE
     Indication: ADRENAL GLAND CANCER
     Dosage: (35 MG DECITABINE AND 100 MG CEDAZURIDINE), QD ON DAYS 1?5 EACH 28 DAY CYCLE
     Route: 048
     Dates: start: 20210428
  2. MULTIPLE VITAMINS [Concomitant]
     Active Substance: VITAMINS
     Indication: PRODUCT USED FOR UNKNOWN INDICATION
     Dosage: UNK
     Route: 065
  3. VITAMIN C [CALCIUM ASCORBATE] [Concomitant]
     Active Substance: CALCIUM ASCORBATE
     Indication: PRODUCT USED FOR UNKNOWN INDICATION
     Dosage: UNK
     Route: 065
  4. GABAPENTIN. [Concomitant]
     Active Substance: GABAPENTIN
     Indication: PRODUCT USED FOR UNKNOWN INDICATION
     Dosage: UNK
     Route: 065
  5. FUROSEMIDE. [Concomitant]
     Active Substance: FUROSEMIDE
     Indication: PRODUCT USED FOR UNKNOWN INDICATION
     Dosage: (POWDER)
     Route: 065

REACTIONS (5)
  - Product use in unapproved indication [Unknown]
  - Blood count abnormal [Unknown]
  - Upper limb fracture [Unknown]
  - Fall [Unknown]
  - Transfusion [Unknown]

NARRATIVE: CASE EVENT DATE: 20210428
